FAERS Safety Report 9198011 (Version 1)
Quarter: 2013Q1

REPORT INFORMATION
  Report Type: Spontaneous
  Country: JP (occurrence: JP)
  Receive Date: 20130328
  Receipt Date: 20130328
  Transmission Date: 20140127
  Serious: Yes (Hospitalization)
  Sender: FDA-Public Use
  Company Number: JP-WATSON-2013-03649

PATIENT
  Age: 77 Year
  Sex: Male

DRUGS (17)
  1. RAPAFLO (WATSON LABORATORIES) [Suspect]
     Indication: DYSURIA
     Dosage: 8 MG, DAILY
     Route: 048
     Dates: start: 20111104, end: 20130220
  2. CONTOMIN [Suspect]
     Indication: THERAPEUTIC RESPONSE INCREASED
     Dosage: 25 MG, DAILY
     Route: 048
     Dates: start: 20120113, end: 20130212
  3. LEXOTAN [Concomitant]
     Indication: NEUROSIS
     Dosage: 4 MG, DAILY
     Route: 048
     Dates: start: 20110324, end: 20130212
  4. LEXOTAN [Concomitant]
     Dosage: 2 MG, DAILY
     Route: 048
     Dates: start: 20130213
  5. MYSLEE [Concomitant]
     Indication: INSOMNIA
     Dosage: 19 MG, DAILY
     Route: 048
     Dates: start: 20110324
  6. MYSLEE [Concomitant]
     Indication: NEUROSIS
  7. RILMAZAFONE HYDROCHLORIDE [Concomitant]
     Indication: INSOMNIA
     Dosage: 1 MG, DAILY
     Route: 048
     Dates: start: 20110413
  8. RILMAZAFONE HYDROCHLORIDE [Concomitant]
     Indication: NEUROSIS
  9. BAYASPIRIN [Concomitant]
     Indication: MYOCARDIAL INFARCTION
     Dosage: 100 MG, DAILY
     Route: 048
     Dates: start: 20110915
  10. BAYASPIRIN [Concomitant]
     Indication: CAROTID ARTERY STENOSIS
  11. LOCHOL                             /00638501/ [Concomitant]
     Indication: HYPERLIPIDAEMIA
     Dosage: 30 MG, DAILY
     Route: 048
     Dates: start: 20110915
  12. SLOWHEIM [Concomitant]
     Indication: INSOMNIA
     Dosage: 10 MG, DAILY
     Route: 048
     Dates: start: 20120113
  13. SLOWHEIM [Concomitant]
     Indication: NEUROSIS
  14. AVOLVE [Concomitant]
     Indication: BENIGN PROSTATIC HYPERPLASIA
     Dosage: 0.5 MG, DAILY
     Route: 048
     Dates: start: 20130121
  15. PRORNER [Concomitant]
     Indication: PRODUCT USED FOR UNKNOWN INDICATION
     Dosage: 120 MCG, DAILY
     Route: 048
  16. CIBENOL [Concomitant]
     Indication: PRODUCT USED FOR UNKNOWN INDICATION
     Dosage: 100 MG, DAILY
     Route: 048
  17. WARFARIN [Concomitant]
     Indication: PRODUCT USED FOR UNKNOWN INDICATION
     Dosage: 3 MG, DAILY
     Route: 048

REACTIONS (2)
  - Loss of consciousness [Recovered/Resolved]
  - Condition aggravated [Recovered/Resolved]
